FAERS Safety Report 5268853-5 (Version None)
Quarter: 2007Q1

REPORT INFORMATION
  Report Type: 
  Country: None (occurrence: None)
  Receive Date: 20061212
  Receipt Date: 20050315
  Transmission Date: 20070707
  Serious: Yes (Hospitalization)
  Sender: FDA-Public Use
  Company Number: 2005UW04097

PATIENT

DRUGS (3)
  1. CASODEX [Suspect]
  2. LUPRON [Concomitant]
  3. MANY MEDICATIONS [Concomitant]

REACTIONS (1)
  - BLOOD BILIRUBIN INCREASED [None]
